FAERS Safety Report 7313535-9 (Version None)
Quarter: 2011Q1

REPORT INFORMATION
  Report Type: 
  Country: None (occurrence: None)
  Receive Date: 20110225
  Receipt Date: 20110214
  Transmission Date: 20110831
  Serious: Yes (Hospitalization)
  Sender: FDA-Public Use
  Company Number: US-MYLANLABS-2011S1000846

PATIENT
  Age: 17 Year
  Sex: Female
  Weight: 65.77 kg

DRUGS (6)
  1. AMNESTEEM [Suspect]
     Route: 048
     Dates: start: 20100709
  2. PAXIL [Concomitant]
     Indication: DEPRESSION
  3. AMNESTEEM [Suspect]
     Indication: ACNE
     Route: 048
     Dates: start: 20100709
  4. TRI-SPRINTEC [Concomitant]
  5. AMNESTEEM [Suspect]
     Indication: ACNE CYSTIC
     Route: 048
     Dates: start: 20100709
  6. AMNESTEEM [Suspect]
     Route: 048
     Dates: start: 20100709

REACTIONS (4)
  - HOMICIDAL IDEATION [None]
  - DEPRESSION [None]
  - SUICIDAL IDEATION [None]
  - ABNORMAL BEHAVIOUR [None]
